FAERS Safety Report 14304027 (Version 1)
Quarter: 2017Q4

REPORT INFORMATION
  Report Type: Spontaneous
  Country: JP (occurrence: JP)
  Receive Date: 20171219
  Receipt Date: 20171219
  Transmission Date: 20180321
  Serious: Yes (Other)
  Sender: FDA-Public Use
  Company Number: JP-OTSUKA-JP-2012-16708

PATIENT
  Age: 50 Year
  Sex: Male

DRUGS (4)
  1. CONTOMIN [Concomitant]
     Active Substance: CHLORPROMAZINE
     Dosage: 75 MG, QD
     Route: 065
  2. ABILIFY [Suspect]
     Active Substance: ARIPIPRAZOLE
     Indication: BIPOLAR DISORDER
     Dosage: 6 MG, QD
     Route: 048
  3. LIMAS [Concomitant]
     Active Substance: LITHIUM CARBONATE
     Dosage: UNK
     Route: 048
  4. ABILIFY [Suspect]
     Active Substance: ARIPIPRAZOLE
     Dosage: 24 MG, QD
     Route: 048

REACTIONS (3)
  - Stupor [Unknown]
  - Neuroleptic malignant syndrome [Recovering/Resolving]
  - Mania [Unknown]

NARRATIVE: CASE EVENT DATE: 20121030
